FAERS Safety Report 19961666 (Version 1)
Quarter: 2021Q4

REPORT INFORMATION
  Report Type: Spontaneous
  Country: RO (occurrence: RO)
  Receive Date: 20211018
  Receipt Date: 20211018
  Transmission Date: 20220304
  Serious: Yes (Hospitalization, Other)
  Sender: FDA-Public Use
  Company Number: RO-ABBVIE-21K-135-4120056-00

PATIENT
  Sex: Male

DRUGS (1)
  1. VENETOCLAX [Suspect]
     Active Substance: VENETOCLAX
     Indication: Chronic lymphocytic leukaemia
     Route: 048
     Dates: end: 20211012

REACTIONS (1)
  - Hip arthroplasty [Not Recovered/Not Resolved]

NARRATIVE: CASE EVENT DATE: 20211012
